FAERS Safety Report 8165290-0 (Version None)
Quarter: 2012Q1

REPORT INFORMATION
  Report Type: 
  Country: None (occurrence: None)
  Receive Date: 20120223
  Receipt Date: 20120223
  Transmission Date: 20120608
  Serious: Yes (Hospitalization, Other)
  Sender: FDA-Public Use
  Company Number: None

PATIENT
  Sex: Female

DRUGS (2)
  1. KEPPRA [Concomitant]
  2. GLEEVEC [Suspect]
     Dosage: 400 MG QD PO SINCE BEFORE 6/9/2006 - DISCONTINUE 1/3/2011
     Route: 048

REACTIONS (1)
  - PLEURAL EFFUSION [None]
